FAERS Safety Report 7793143-6 (Version None)
Quarter: 2011Q4

REPORT INFORMATION
  Report Type: 
  Country: None (occurrence: None)
  Receive Date: 20111003
  Receipt Date: 20110928
  Transmission Date: 20120403
  Serious: Yes (Hospitalization)
  Sender: FDA-Public Use
  Company Number: US-ABBOTT-11P-163-0856777-00

PATIENT
  Age: 7 Year
  Sex: Male

DRUGS (2)
  1. DEPAKOTE [Suspect]
     Indication: AFFECTIVE DISORDER
     Dosage: UNKNOWN DOSE WAS INCREASED
     Route: 048
     Dates: end: 20110901
  2. DEPAKOTE [Suspect]
     Indication: ATTENTION DEFICIT/HYPERACTIVITY DISORDER
     Dosage: UNKNOWN DOSE
     Route: 048
     Dates: start: 20110901, end: 20110901

REACTIONS (1)
  - ADVERSE REACTION [None]
